FAERS Safety Report 23316627 (Version 1)
Quarter: 2023Q4

REPORT INFORMATION
  Report Type: Spontaneous
  Country: US (occurrence: None)
  Receive Date: 20231219
  Receipt Date: 20231219
  Transmission Date: 20240109
  Serious: No
  Sender: FDA-Public Use
  Company Number: US-ROCHE-3254652

PATIENT
  Age: 22 Year
  Sex: Male
  Weight: 86.26 kg

DRUGS (1)
  1. HEMLIBRA [Suspect]
     Active Substance: EMICIZUMAB-KXWH
     Indication: Factor VIII deficiency
     Dosage: 3MG/KG EVERY WEEK FOR 4 WEEKS FOR LOADING DOSE, THEN 3MG/KG EVERY OTHER WEEK FOR MAINTENANCE DOSE
     Route: 065
     Dates: start: 202103

REACTIONS (2)
  - Off label use [Unknown]
  - No adverse event [Unknown]

NARRATIVE: CASE EVENT DATE: 20221209
